FAERS Safety Report 5154607-7 (Version None)
Quarter: 2006Q4

REPORT INFORMATION
  Report Type: 
  Country: None (occurrence: None)
  Receive Date: 20061113
  Receipt Date: 20061027
  Transmission Date: 20070319
  Serious: Yes (Hospitalization)
  Sender: FDA-Public Use
  Company Number: 230682K06CAN

PATIENT
  Sex: Female

DRUGS (4)
  1. REBIF [Suspect]
     Indication: MULTIPLE SCLEROSIS
     Dates: start: 20030110
  2. FAMOTIDINE [Concomitant]
  3. OXAZEPAM [Concomitant]
  4. SALICYLATES [Concomitant]

REACTIONS (5)
  - BLOOD GLUCOSE INCREASED [None]
  - CELLULITIS ORBITAL [None]
  - LOSS OF CONTROL OF LEGS [None]
  - SPUTUM DISCOLOURED [None]
  - VOMITING [None]
